FAERS Safety Report 10878716 (Version 3)
Quarter: 2015Q3

REPORT INFORMATION
  Report Type: Spontaneous
  Country: JP (occurrence: JP)
  Receive Date: 20150302
  Receipt Date: 20150730
  Transmission Date: 20151125
  Serious: Yes (Death, Hospitalization, Other)
  Sender: FDA-Public Use
  Company Number: PHHY2014JP139571

PATIENT
  Age: 51 Year
  Sex: Female
  Weight: 41 kg

DRUGS (8)
  1. SAWACILLIN [Concomitant]
     Active Substance: AMOXICILLIN
     Indication: INFECTION
     Dosage: 250 MG, TID
     Route: 048
     Dates: start: 20140712, end: 20140911
  2. RINDERON V [Concomitant]
     Active Substance: BETAMETHASONE VALERATE
     Indication: INTRACRANIAL PRESSURE INCREASED
     Dosage: 2 MG, BID
     Route: 048
     Dates: start: 20140827, end: 20140911
  3. OXYCONTIN [Concomitant]
     Active Substance: OXYCODONE HYDROCHLORIDE
     Indication: CANCER PAIN
     Dosage: 15 MG, BID
     Route: 048
     Dates: start: 20140611, end: 20140911
  4. LANSOPRAZOLE. [Concomitant]
     Active Substance: LANSOPRAZOLE
     Indication: GASTRIC ULCER
     Dosage: 30 MG, QD
     Route: 048
     Dates: start: 20130403, end: 20140911
  5. SENNOSIDE [Concomitant]
     Active Substance: SENNOSIDES
     Indication: CONSTIPATION
     Dosage: 12 OT, QD
     Route: 048
     Dates: start: 20131023, end: 20140911
  6. AFINITOR [Suspect]
     Active Substance: EVEROLIMUS
     Indication: BREAST CANCER RECURRENT
     Dosage: 10 MG, QD
     Route: 048
     Dates: start: 20140612, end: 20140904
  7. AROMASIN [Concomitant]
     Active Substance: EXEMESTANE
     Indication: BREAST CANCER RECURRENT
     Dosage: 25 MG, QD
     Route: 048
     Dates: start: 20140414, end: 20140904
  8. LOXOPROFEN NA [Concomitant]
     Active Substance: LOXOPROFEN SODIUM
     Indication: CANCER PAIN
     Dosage: 60 MG, TID
     Route: 048
     Dates: start: 20130403, end: 20140911

REACTIONS (30)
  - Fatigue [Fatal]
  - Lymphangiosis carcinomatosa [Fatal]
  - Decreased appetite [Unknown]
  - Stomatitis [Recovering/Resolving]
  - Pyrexia [Fatal]
  - Respiratory failure [Fatal]
  - Tachycardia [Not Recovered/Not Resolved]
  - Renal impairment [Unknown]
  - Blood pressure decreased [Unknown]
  - Aphthous ulcer [Unknown]
  - Oral candidiasis [Unknown]
  - Dyspnoea [Fatal]
  - Cyanosis [Fatal]
  - Palpitations [Unknown]
  - Interstitial lung disease [Fatal]
  - Hypoxia [Fatal]
  - Cough [Fatal]
  - Pain [Unknown]
  - Gastric haemorrhage [Unknown]
  - Malignant neoplasm progression [Unknown]
  - Malaise [Fatal]
  - Atrial fibrillation [Unknown]
  - Pleural effusion [Unknown]
  - Oedema [Unknown]
  - Pneumocystis jirovecii pneumonia [Unknown]
  - Palmar-plantar erythrodysaesthesia syndrome [Not Recovered/Not Resolved]
  - Stenotrophomonas test positive [Unknown]
  - Metastases to central nervous system [Unknown]
  - Urine output decreased [Unknown]
  - Neutrophil count decreased [Unknown]

NARRATIVE: CASE EVENT DATE: 20140625
